FAERS Safety Report 24446654 (Version 2)
Quarter: 2025Q1

REPORT INFORMATION
  Report Type: Report from Study
  Country: DE (occurrence: DE)
  Receive Date: 20241016
  Receipt Date: 20250113
  Transmission Date: 20250408
  Serious: Yes (Life-Threatening, Hospitalization, Other)
  Sender: TAKEDA
  Company Number: DE-TAKEDA-2024TUS101158

PATIENT
  Age: 13 Year
  Sex: Female

DRUGS (11)
  1. TEDUGLUTIDE [Suspect]
     Active Substance: TEDUGLUTIDE
     Indication: Short-bowel syndrome
     Dosage: 0.8 MILLIGRAM, QD
     Dates: start: 20171001, end: 20200825
  2. TEDUGLUTIDE [Suspect]
     Active Substance: TEDUGLUTIDE
     Dosage: 0.9 MILLIGRAM, 1/WEEK
     Dates: start: 20200826, end: 20210317
  3. TEDUGLUTIDE [Suspect]
     Active Substance: TEDUGLUTIDE
     Dosage: 0.9 MILLIGRAM, QD
     Dates: start: 20210318, end: 20210528
  4. TEDUGLUTIDE [Suspect]
     Active Substance: TEDUGLUTIDE
     Dosage: 1.1 MILLIGRAM, QD
     Dates: start: 20230227, end: 20230731
  5. TEDUGLUTIDE [Suspect]
     Active Substance: TEDUGLUTIDE
     Dosage: 1.2 MILLIGRAM, QD
     Dates: start: 20230801, end: 20240305
  6. TEDUGLUTIDE [Suspect]
     Active Substance: TEDUGLUTIDE
     Dosage: 1.25 MILLIGRAM, QD
     Dates: start: 20240306, end: 202412
  7. TEDUGLUTIDE [Suspect]
     Active Substance: TEDUGLUTIDE
     Dosage: 1.5 MILLIGRAM, QD
     Dates: start: 202412
  8. FUROSEMIDE [Concomitant]
     Active Substance: FUROSEMIDE
     Indication: Oedema
     Dates: start: 20190828, end: 20191006
  9. FUROSEMIDE [Concomitant]
     Active Substance: FUROSEMIDE
     Indication: Dehydration
     Dosage: 68.6 MILLIGRAM, QD
     Dates: start: 20211215
  10. ENOXAPARIN SODIUM [Concomitant]
     Active Substance: ENOXAPARIN SODIUM
     Indication: Coagulation factor decreased
     Dosage: 80 MILLIGRAM, QD
     Dates: start: 20211215
  11. ERGOCALCIFEROL\PHYTONADIONE\RETINOL\TOCOPHEROL [Concomitant]
     Active Substance: ERGOCALCIFEROL\PHYTONADIONE\RETINOL\TOCOPHEROL
     Indication: Hypovitaminosis
     Dosage: 6 MILLILITER, QD
     Dates: start: 20211215

REACTIONS (8)
  - Bacterial sepsis [Recovered/Resolved]
  - Systemic inflammatory response syndrome [Recovered/Resolved]
  - Coagulopathy [Recovered/Resolved]
  - Thrombocytopenia [Recovered/Resolved]
  - Leukopenia [Recovered/Resolved]
  - Vascular device infection [Recovered/Resolved]
  - Herpes simplex reactivation [Recovered/Resolved]
  - Nasopharyngitis [Recovered/Resolved]

NARRATIVE: CASE EVENT DATE: 20240801
